FAERS Safety Report 6178375-5 (Version None)
Quarter: 2009Q2

REPORT INFORMATION
  Report Type: 
  Country: None (occurrence: None)
  Receive Date: 20090504
  Receipt Date: 20080205
  Transmission Date: 20091009
  Serious: No
  Sender: FDA-Public Use
  Company Number: FR-ALEXION-A200800019

PATIENT

DRUGS (2)
  1. SOLIRIS [Suspect]
     Indication: PAROXYSMAL NOCTURNAL HAEMOGLOBINURIA
     Dosage: 600 MG, SINGLE
     Route: 042
     Dates: start: 20080204, end: 20080204
  2. SOLIRIS [Suspect]
     Dosage: 600 MG, SINGLE
     Route: 042
     Dates: start: 20080211, end: 20080211

REACTIONS (1)
  - HEADACHE [None]
